FAERS Safety Report 8314238-4 (Version None)
Quarter: 2012Q2

REPORT INFORMATION
  Report Type: 
  Country: None (occurrence: None)
  Receive Date: 20120424
  Receipt Date: 20120416
  Transmission Date: 20120825
  Serious: Yes (Other)
  Sender: FDA-Public Use
  Company Number: 2012SP020543

PATIENT
  Age: 62 Year
  Sex: Female
  Weight: 64 kg

DRUGS (9)
  1. REBETOL [Suspect]
     Indication: HEPATITIS C
     Dosage: 600 MG; QD; PO
     Route: 048
     Dates: start: 20120207, end: 20120221
  2. AMLODIPINE [Concomitant]
  3. FEROTYM [Concomitant]
  4. ALCENOL [Concomitant]
  5. LIVALO [Concomitant]
  6. EPADEL-S [Concomitant]
  7. PEG-INTRON [Suspect]
     Indication: HEPATITIS C
     Dosage: 1.5 MCG/KG; QW; SC
     Route: 058
     Dates: start: 20120207, end: 20120214
  8. NEO-MERCAZOLE TAB [Concomitant]
  9. MICARDIS [Concomitant]

REACTIONS (2)
  - MALAISE [None]
  - BRADYCARDIA [None]
